FAERS Safety Report 9237091 (Version 2)
Quarter: 2013Q3

REPORT INFORMATION
  Report Type: Spontaneous
  Country: US (occurrence: US)
  Receive Date: 20130417
  Receipt Date: 20130709
  Transmission Date: 20140515
  Serious: Yes (Hospitalization)
  Sender: FDA-Public Use
  Company Number: US-PFIZER INC-2013070923

PATIENT
  Age: 29 Year
  Sex: Male
  Weight: 71.66 kg

DRUGS (1)
  1. XYNTHA [Suspect]
     Indication: FACTOR VIII DEFICIENCY
     Dosage: 20 IU/KG, AS NEEDED
     Route: 042

REACTIONS (1)
  - Disease complication [Unknown]
